FAERS Safety Report 9772598 (Version 1)
Quarter: 2013Q4

REPORT INFORMATION
  Report Type: Spontaneous
  Country: US (occurrence: US)
  Receive Date: 20131219
  Receipt Date: 20131219
  Transmission Date: 20140711
  Serious: No
  Sender: FDA-Public Use
  Company Number: US-PFIZER INC-2013362891

PATIENT
  Sex: Female

DRUGS (2)
  1. LYRICA [Suspect]
     Indication: NEURALGIA
     Dosage: 50 MG, 3X/DAY
  2. LYRICA [Suspect]
     Indication: PAIN

REACTIONS (3)
  - Off label use [Unknown]
  - Discomfort [Unknown]
  - Drug ineffective for unapproved indication [Unknown]
